FAERS Safety Report 4943998-5 (Version None)
Quarter: 2006Q1

REPORT INFORMATION
  Report Type: 
  Country: None (occurrence: None)
  Receive Date: 20060315
  Receipt Date: 20060306
  Transmission Date: 20060701
  Serious: Yes (Other)
  Sender: FDA-Public Use
  Company Number: EMADSS2003003054

PATIENT
  Age: 16 Year
  Sex: Male
  Weight: 64 kg

DRUGS (3)
  1. REMICADE [Suspect]
     Dosage: 3MG/KG
     Route: 041
     Dates: start: 20020820
  2. REMICADE [Suspect]
     Indication: RHEUMATOID ARTHRITIS
     Dosage: 3MG/KG
     Route: 041
     Dates: start: 20020820
  3. METHOTREXATE [Concomitant]
     Route: 048
     Dates: start: 20020801

REACTIONS (1)
  - TUBERCULOSIS [None]
